FAERS Safety Report 19456309 (Version 1)
Quarter: 2021Q2

REPORT INFORMATION
  Report Type: Spontaneous
  Country: US (occurrence: US)
  Receive Date: 20210624
  Receipt Date: 20210624
  Transmission Date: 20210717
  Serious: Yes (Hospitalization, Disabling)
  Sender: FDA-Public Use
  Company Number: None

PATIENT
  Age: 86 Year
  Sex: Female
  Weight: 90 kg

DRUGS (9)
  1. FOSAMAX 70MG Q7D [Concomitant]
  2. PREDNISONE 5 MG PO DAILY [Concomitant]
  3. MIRABEGRON 25 MG PO QHS [Concomitant]
  4. APIXABAN 5MG PO BID [Concomitant]
  5. CERTOLIZUMAB PEGOL [Suspect]
     Active Substance: CERTOLIZUMAB PEGOL
     Indication: RHEUMATOID ARTHRITIS
     Dosage: ?          OTHER FREQUENCY:EVERY 28 DAYS;?
     Route: 058
  6. METHOTREXATE 17.5 MG PO Q7D [Concomitant]
  7. ATENOLOL 25 MG PO BID [Concomitant]
  8. VERAPAMIL CR 120 MG PO DAILY [Concomitant]
  9. CITALOPRAM 20 MG PO DAILY [Concomitant]

REACTIONS (2)
  - Ejection fraction decreased [None]
  - Cardiac failure [None]

NARRATIVE: CASE EVENT DATE: 20210621
